FAERS Safety Report 17245967 (Version 1)
Quarter: 2020Q1

REPORT INFORMATION
  Report Type: Spontaneous
  Country: NL (occurrence: NL)
  Receive Date: 20200108
  Receipt Date: 20200108
  Transmission Date: 20200409
  Serious: Yes (Hospitalization, Other)
  Sender: FDA-Public Use
  Company Number: NL-TEVA-2020-NL-1164361

PATIENT
  Age: 68 Year
  Sex: Female
  Weight: 70 kg

DRUGS (7)
  1. RIVAROXABAN [Concomitant]
     Active Substance: RIVAROXABAN
     Dosage: TABLET, 20 MG (MILLIGRAM)
  2. ENTRESTO [Concomitant]
     Active Substance: SACUBITRIL\VALSARTAN
     Dosage: TABLET, 97/103 MG (MILLIGRAM)
  3. SELOKEEN (METOPROLOL) [Concomitant]
     Dosage: CONTROLLED RELEASE TABLET 150 MG
  4. EPLERENON [Concomitant]
     Active Substance: EPLERENONE
     Dosage: TABLET, 50 MG (MILLIGRAM)
  5. SIMVASTATINE [Concomitant]
     Active Substance: SIMVASTATIN
     Dosage: FILMOMHULDE TABLET, 20 MG (MILLIGRAM)
  6. SULFASALAZINE. [Suspect]
     Active Substance: SULFASALAZINE
     Indication: PSORIATIC ARTHROPATHY
     Dosage: GASTRO-RESISTANT TABLET, 500 MG (MILLIGRAMS), TWICE A DAY, 2
     Dates: start: 20191021, end: 20191203
  7. FUROSEMIDE. [Concomitant]
     Active Substance: FUROSEMIDE
     Dosage: TABLET, 20 MG (MILLIGRAM)

REACTIONS (3)
  - Stomatitis [Not Recovered/Not Resolved]
  - Face oedema [Not Recovered/Not Resolved]
  - Pancreatitis [Unknown]

NARRATIVE: CASE EVENT DATE: 20191201
